FAERS Safety Report 25637578 (Version 1)
Quarter: 2025Q3

REPORT INFORMATION
  Report Type: Spontaneous
  Country: EU (occurrence: EU)
  Receive Date: 20250804
  Receipt Date: 20250804
  Transmission Date: 20251021
  Serious: Yes (Congenital Anomaly)
  Sender: ACCORD
  Company Number: None

PATIENT
  Sex: Male
  Weight: 2.62 kg

DRUGS (5)
  1. SERTRALINE [Suspect]
     Active Substance: SERTRALINE HYDROCHLORIDE
     Dates: start: 202309, end: 202406
  2. PINIMENTHOL [Concomitant]
     Dates: start: 202403, end: 202405
  3. XYLOMETAZOLINE [Concomitant]
     Active Substance: XYLOMETAZOLINE
     Dates: start: 202403, end: 202406
  4. METHYLDOPA [Concomitant]
     Active Substance: METHYLDOPA
     Dates: start: 202311, end: 202406
  5. LEVOTHYROXINE SODIUM\POTASSIUM IODIDE [Concomitant]
     Active Substance: LEVOTHYROXINE SODIUM\POTASSIUM IODIDE
     Dates: start: 202309, end: 202406

REACTIONS (2)
  - Ventricular septal defect [Unknown]
  - Foetal exposure during pregnancy [Unknown]
